FAERS Safety Report 8074577-1 (Version None)
Quarter: 2012Q1

REPORT INFORMATION
  Report Type: 
  Country: None (occurrence: None)
  Receive Date: 20120126
  Receipt Date: 20120122
  Transmission Date: 20120608
  Serious: Yes (Other)
  Sender: FDA-Public Use
  Company Number: US-PFIZER INC-2012017507

PATIENT
  Sex: Female

DRUGS (1)
  1. REVATIO [Suspect]
     Indication: HYPERTENSION
     Dosage: UNK
     Dates: start: 20111201

REACTIONS (4)
  - ABDOMINAL DISCOMFORT [None]
  - HEART RATE INCREASED [None]
  - HEADACHE [None]
  - PALPITATIONS [None]
